FAERS Safety Report 7285345-2 (Version None)
Quarter: 2011Q1

REPORT INFORMATION
  Report Type: 
  Country: None (occurrence: None)
  Receive Date: 20110210
  Receipt Date: 20110128
  Transmission Date: 20110831
  Serious: Yes (Other)
  Sender: FDA-Public Use
  Company Number: US-ROCHE-756220

PATIENT
  Sex: Female

DRUGS (1)
  1. BONIVA [Suspect]
     Route: 065
     Dates: start: 20030101, end: 20100101

REACTIONS (6)
  - BONE DENSITY DECREASED [None]
  - TOOTH LOSS [None]
  - LIVER INJURY [None]
  - JAW DISORDER [None]
  - EMOTIONAL DISTRESS [None]
  - ACUTE PHOSPHATE NEPHROPATHY [None]
